FAERS Safety Report 8150035 (Version 4)
Quarter: 2013Q4

REPORT INFORMATION
  Report Type: Spontaneous
  Country: US (occurrence: US)
  Receive Date: 20110922
  Receipt Date: 20131118
  Transmission Date: 20140711
  Serious: Yes (Other)
  Sender: FDA-Public Use
  Company Number: US-GLAXOSMITHKLINE-A0945464A

PATIENT
  Sex: Male
  Weight: 170.5 kg

DRUGS (7)
  1. AVANDIA [Suspect]
     Indication: DIABETES MELLITUS
     Dosage: 8MG PER DAY
     Route: 048
     Dates: start: 2004, end: 2010
  2. LISINOPRIL [Concomitant]
  3. LOPID [Concomitant]
  4. HCTZ [Concomitant]
  5. METFORMIN [Concomitant]
  6. CRESTOR [Concomitant]
  7. ZOLOFT [Concomitant]

REACTIONS (3)
  - Bundle branch block right [Unknown]
  - Cardiac failure chronic [Unknown]
  - Heart injury [Unknown]
